FAERS Safety Report 5523598-9 (Version None)
Quarter: 2007Q4

REPORT INFORMATION
  Report Type: 
  Country: None (occurrence: None)
  Receive Date: 20071121
  Receipt Date: 20071115
  Transmission Date: 20080405
  Serious: Yes (Other)
  Sender: FDA-Public Use
  Company Number: CA-JNJFOC-20070901394

PATIENT
  Sex: Female

DRUGS (9)
  1. REMICADE [Suspect]
     Route: 042
  2. REMICADE [Suspect]
     Indication: RHEUMATOID ARTHRITIS
     Route: 042
  3. ACTONEL [Concomitant]
     Route: 048
  4. HYDROMORPHINE [Concomitant]
     Route: 048
  5. CELEBREX [Concomitant]
     Route: 048
  6. METOPROLOL [Concomitant]
     Route: 048
  7. LIPITOR [Concomitant]
     Route: 048
  8. PANTOLAC [Concomitant]
     Route: 048
  9. ASPIRIN [Concomitant]
     Route: 048

REACTIONS (1)
  - LUNG CARCINOMA CELL TYPE UNSPECIFIED STAGE I [None]
